FAERS Safety Report 21883984 (Version 1)
Quarter: 2023Q1

REPORT INFORMATION
  Report Type: Spontaneous
  Country: US (occurrence: US)
  Receive Date: 20230119
  Receipt Date: 20230119
  Transmission Date: 20230418
  Serious: No
  Sender: FDA-Public Use
  Company Number: US-BRISTOL-MYERS SQUIBB COMPANY-2023-007982

PATIENT
  Age: 67 Year
  Sex: Male

DRUGS (1)
  1. REVLIMID [Suspect]
     Active Substance: LENALIDOMIDE
     Indication: Product used for unknown indication
     Dosage: REVLIMID 2.5MG QD FOR 1 WEEK ON,THEN 1 WEEK OFF (DAYS 1-7 AND DAYS 15-21
     Route: 048

REACTIONS (1)
  - Renal disorder [Unknown]
